FAERS Safety Report 8762175 (Version 5)
Quarter: 2015Q2

REPORT INFORMATION
  Report Type: Report from Study
  Country: JP (occurrence: JP)
  Receive Date: 20120829
  Receipt Date: 20150521
  Transmission Date: 20150821
  Serious: Yes (Death, Life-Threatening, Hospitalization, Other)
  Sender: FDA-Public Use
  Company Number: JP-PFIZER INC-2012208042

PATIENT
  Age: 64 Year
  Sex: Female
  Weight: 37 kg

DRUGS (9)
  1. DOGMATYL [Concomitant]
     Active Substance: SULPIRIDE
     Dosage: 0.5 G, 3X/DAY
     Route: 048
     Dates: start: 20120819, end: 20120919
  2. XALKORI [Suspect]
     Active Substance: CRIZOTINIB
     Indication: NON-SMALL CELL LUNG CANCER
     Dosage: 250 MG, 2X/DAY
     Route: 048
     Dates: start: 20120810, end: 20120813
  3. HYPEN [Concomitant]
     Active Substance: ETODOLAC
     Dosage: 300 MG, 2X/DAY
     Route: 048
     Dates: start: 20120702, end: 20120909
  4. XALKORI [Suspect]
     Active Substance: CRIZOTINIB
     Dosage: 250 MG, 2X/DAY
     Route: 048
     Dates: start: 20120815, end: 20120820
  5. OXYCONTIN [Concomitant]
     Active Substance: OXYCODONE HYDROCHLORIDE
     Dosage: 20 MG, 2X/DAY
     Route: 048
     Dates: start: 20120719, end: 20120825
  6. ASTOMIN [Concomitant]
     Active Substance: DIMEMORFAN
     Dosage: 10 MG, 3X/DAY
     Route: 048
     Dates: start: 20120815, end: 20120919
  7. MYSLEE [Concomitant]
     Active Substance: ZOLPIDEM TARTRATE
     Dosage: 10 MG, 1X/DAY
     Route: 048
     Dates: start: 20120612, end: 20120825
  8. SENNARIDE [Concomitant]
     Active Substance: SENNOSIDES A AND B
     Dosage: 12 MG, AS NEEDED
     Route: 048
     Dates: start: 20120706, end: 20120816
  9. TAKEPRON [Concomitant]
     Active Substance: LANSOPRAZOLE
     Dosage: 15 MG, 1X/DAY
     Route: 048
     Dates: start: 20120702, end: 20120917

REACTIONS (3)
  - Interstitial lung disease [Recovering/Resolving]
  - Disease progression [Fatal]
  - Non-small cell lung cancer [Fatal]

NARRATIVE: CASE EVENT DATE: 20120820
